FAERS Safety Report 5211372-2 (Version None)
Quarter: 2007Q1

REPORT INFORMATION
  Report Type: 
  Country: None (occurrence: None)
  Receive Date: 20070112
  Receipt Date: 20061227
  Transmission Date: 20070707
  Serious: Yes (Hospitalization)
  Sender: FDA-Public Use
  Company Number: 2006SP004485

PATIENT
  Age: 74 Year
  Sex: Female

DRUGS (15)
  1. XOPENEX [Suspect]
     Indication: BRONCHITIS
     Dosage: 1.25MG/3ML;INHALATION
     Route: 055
     Dates: start: 20060101, end: 20061201
  2. XOPENEX [Suspect]
     Indication: CHRONIC OBSTRUCTIVE PULMONARY DISEASE
     Dosage: 1.25MG/3ML;INHALATION
     Route: 055
     Dates: start: 20060101, end: 20061201
  3. XOPENEX [Suspect]
     Indication: EMPHYSEMA
     Dosage: 1.25MG/3ML;INHALATION
     Route: 055
     Dates: start: 20060101, end: 20061201
  4. TIOTROPIUM BROMIDE [Concomitant]
  5. LANOXIN [Concomitant]
  6. LISINOPRIL [Concomitant]
  7. NALEX [Concomitant]
  8. ESTROGENS CONJUGATED [Concomitant]
  9. RESTORIL [Concomitant]
  10. SYNTHROID [Concomitant]
  11. VITAMINS [Concomitant]
  12. ASPIRIN [Concomitant]
  13. SINGULAIR [Concomitant]
  14. XANAX [Concomitant]
  15. OXYGEN [Concomitant]

REACTIONS (5)
  - BACK PAIN [None]
  - COUGH [None]
  - LUNG DISORDER [None]
  - PNEUMONIA [None]
  - VISION BLURRED [None]
